FAERS Safety Report 10411262 (Version 1)
Quarter: 2014Q3

REPORT INFORMATION
  Report Type: Other
  Country: CZ (occurrence: CZ)
  Receive Date: 20140826
  Receipt Date: 20140826
  Transmission Date: 20150326
  Serious: Yes (Other)
  Sender: FDA-Public Use
  Company Number: CZ-MYLAN-2014M1001713

PATIENT

DRUGS (2)
  1. ZOLADEX [Concomitant]
     Active Substance: GOSERELIN ACETATE
     Indication: PROSTATE CANCER
     Route: 058
     Dates: start: 20130729, end: 20140811
  2. FINASTERID MYLAN 5 MG [Suspect]
     Active Substance: FINASTERIDE
     Indication: PROSTATISM
     Route: 048

REACTIONS (4)
  - Cataract [Unknown]
  - Strabismus [Unknown]
  - Visual impairment [Unknown]
  - Urticaria [Unknown]

NARRATIVE: CASE EVENT DATE: 20130907
